FAERS Safety Report 8157526-7 (Version None)
Quarter: 2012Q1

REPORT INFORMATION
  Report Type: 
  Country: None (occurrence: None)
  Receive Date: 20120222
  Receipt Date: 20120216
  Transmission Date: 20120608
  Serious: Yes (Death, Hospitalization)
  Sender: FDA-Public Use
  Company Number: DK-PFIZER INC-2006033695

PATIENT
  Age: 74 Year
  Sex: Female

DRUGS (18)
  1. ESTRADIOL [Concomitant]
     Route: 048
  2. OMEPRAZOLE [Concomitant]
     Route: 048
  3. VILAN [Concomitant]
     Route: 065
  4. PULMICORT-100 [Concomitant]
     Route: 065
  5. DILTIAZEM HYDROCHLORIDE [Concomitant]
     Route: 048
  6. DIDRONEL [Concomitant]
     Route: 048
  7. SEREVENT [Concomitant]
     Route: 065
  8. TERBASMIN [Concomitant]
     Route: 065
  9. PACISYN [Concomitant]
     Route: 048
  10. PREDNISOLONE [Concomitant]
     Route: 048
  11. NITROMEX [Concomitant]
     Route: 060
  12. LYRICA [Suspect]
     Indication: PAIN
     Dosage: ONCE
     Route: 048
     Dates: start: 20050817, end: 20050817
  13. MORPHINE SULFATE [Suspect]
     Indication: PAIN
     Route: 048
  14. MONTELUKAST SODIUM [Concomitant]
     Route: 048
  15. ACETAMINOPHEN [Concomitant]
     Route: 048
  16. CALCIUM [Concomitant]
     Route: 048
  17. FUROSEMIDE [Concomitant]
     Route: 048
  18. POTASSIUM CHLORIDE [Concomitant]
     Route: 048

REACTIONS (8)
  - NAUSEA [None]
  - CHANGE OF BOWEL HABIT [None]
  - DIZZINESS [None]
  - VOMITING [None]
  - DEATH [None]
  - DRY MOUTH [None]
  - SOMNOLENCE [None]
  - HEADACHE [None]
